FAERS Safety Report 5865126-4 (Version None)
Quarter: 2008Q3

REPORT INFORMATION
  Report Type: 
  Country: None (occurrence: None)
  Receive Date: 20080829
  Receipt Date: 20080821
  Transmission Date: 20090109
  Serious: Yes (Hospitalization)
  Sender: FDA-Public Use
  Company Number: A0744982A

PATIENT
  Sex: Female

DRUGS (5)
  1. COMPAZINE [Suspect]
  2. AMBIEN CR [Suspect]
  3. LORTAB [Suspect]
  4. PERCOCET [Suspect]
  5. PHENERGAN HCL [Suspect]

REACTIONS (2)
  - MULTIPLE DRUG OVERDOSE [None]
  - NO ADVERSE EVENT [None]
